FAERS Safety Report 12069619 (Version 4)
Quarter: 2016Q1

REPORT INFORMATION
  Report Type: Spontaneous
  Country: CN (occurrence: CN)
  Receive Date: 20160211
  Receipt Date: 20160302
  Transmission Date: 20160526
  Serious: Yes (Death, Hospitalization)
  Sender: FDA-Public Use
  Company Number: CN-JNJFOC-20160123371

PATIENT
  Age: 23 Year
  Sex: Male

DRUGS (2)
  1. TYLENOL ER [Suspect]
     Active Substance: ACETAMINOPHEN
     Route: 048
  2. TYLENOL ER [Suspect]
     Active Substance: ACETAMINOPHEN
     Indication: NASOPHARYNGITIS
     Dosage: 1 TABLET (TOTAL 7 TABLETS)
     Route: 048
     Dates: start: 20160119, end: 20160121

REACTIONS (5)
  - Dermatitis exfoliative [Fatal]
  - Sepsis [Fatal]
  - Coma [Fatal]
  - Drug eruption [Fatal]
  - Bacterial infection [Fatal]

NARRATIVE: CASE EVENT DATE: 201601
